FAERS Safety Report 7292380-7 (Version None)
Quarter: 2011Q1

REPORT INFORMATION
  Report Type: 
  Country: None (occurrence: None)
  Receive Date: 20110215
  Receipt Date: 20110203
  Transmission Date: 20110831
  Serious: Yes (Hospitalization)
  Sender: FDA-Public Use
  Company Number: GB-JNJFOC-20110107034

PATIENT
  Age: 45 Year
  Sex: Female

DRUGS (2)
  1. ACETAMINOPHEN [Suspect]
     Indication: PRODUCT USED FOR UNKNOWN INDICATION
     Route: 065
  2. ACETAMINOPHEN [Suspect]
     Route: 065

REACTIONS (8)
  - INTENTIONAL OVERDOSE [None]
  - HYPOTENSION [None]
  - PNEUMONIA [None]
  - COMA [None]
  - ILEUS PARALYTIC [None]
  - HEPATOTOXICITY [None]
  - ANAEMIA [None]
  - METABOLIC ACIDOSIS [None]
